FAERS Safety Report 11399365 (Version 1)
Quarter: 2015Q3

REPORT INFORMATION
  Report Type: Spontaneous
  Country: US (occurrence: None)
  Receive Date: 20150818
  Receipt Date: 20150818
  Transmission Date: 20151125
  Serious: Yes (Hospitalization)
  Sender: FDA-Public Use
  Company Number: None

PATIENT
  Age: 64 Year
  Sex: Male

DRUGS (1)
  1. ZYTIGA [Suspect]
     Active Substance: ABIRATERONE ACETATE
     Indication: PROSTATE CANCER
     Route: 048
     Dates: start: 20150422, end: 20150814

REACTIONS (5)
  - Headache [None]
  - Blood pressure increased [None]
  - Heart rate increased [None]
  - Angina pectoris [None]
  - Myocardial infarction [None]

NARRATIVE: CASE EVENT DATE: 20150722
